FAERS Safety Report 14217125 (Version 1)
Quarter: 2017Q4

REPORT INFORMATION
  Report Type: Spontaneous
  Country: JP (occurrence: JP)
  Receive Date: 20171122
  Receipt Date: 20171122
  Transmission Date: 20180321
  Serious: Yes (Other)
  Sender: FDA-Public Use
  Company Number: JP-LUPIN PHARMACEUTICALS INC.-2016-04866

PATIENT
  Age: 75 Year
  Sex: Male

DRUGS (4)
  1. METFORMIN [Suspect]
     Active Substance: METFORMIN HYDROCHLORIDE
     Indication: GLYCOSURIA
     Dosage: 75 MG,UNK,UNKNOWN
     Route: 065
  2. LISPRO MIX 50 [Concomitant]
     Indication: GLYCOSURIA
     Dosage: UNK UNK,UNK,UNKNOWN
     Route: 065
  3. LINAGLIPTIN [Concomitant]
     Active Substance: LINAGLIPTIN
     Indication: GLYCOSURIA
     Dosage: UNK UNK,UNK,UNKNOWN
     Route: 065
  4. GLIMEPIRIDE. [Suspect]
     Active Substance: GLIMEPIRIDE
     Indication: GLYCOSURIA
     Dosage: 6 MG,UNK,UNKNOWN
     Route: 065

REACTIONS (1)
  - Renal impairment [Recovering/Resolving]
